APPROVED DRUG PRODUCT: DEXAMETHASONE
Active Ingredient: DEXAMETHASONE
Strength: 0.1%
Dosage Form/Route: SUSPENSION/DROPS;OPHTHALMIC
Application: A089170 | Product #001
Applicant: WATSON LABORATORIES INC
Approved: May 9, 1989 | RLD: No | RS: No | Type: DISCN